FAERS Safety Report 5284211-1 (Version None)
Quarter: 2007Q1

REPORT INFORMATION
  Report Type: 
  Country: None (occurrence: None)
  Receive Date: 20070328
  Receipt Date: 20070315
  Transmission Date: 20070707
  Serious: Yes (Hospitalization, Other)
  Sender: FDA-Public Use
  Company Number: 2007BI005951

PATIENT
  Sex: Male

DRUGS (3)
  1. NATALIZUMAB [Suspect]
     Indication: MULTIPLE SCLEROSIS
     Dosage: 300 MG;QM;IV
     Route: 042
     Dates: start: 20061106, end: 20070226
  2. ASPIRIN [Concomitant]
  3. ALLEGRA [Concomitant]

REACTIONS (2)
  - ABDOMINAL STRANGULATED HERNIA [None]
  - B-CELL LYMPHOMA [None]
